FAERS Safety Report 20985902 (Version 1)
Quarter: 2022Q2

REPORT INFORMATION
  Report Type: Spontaneous
  Country: US (occurrence: None)
  Receive Date: 20220618
  Receipt Date: 20220618
  Transmission Date: 20220721
  Serious: Yes (Hospitalization)
  Sender: FDA-Public Use
  Company Number: None

PATIENT
  Age: 67 Year
  Sex: Female
  Weight: 55.5 kg

DRUGS (2)
  1. PAXLOVID [Suspect]
     Active Substance: NIRMATRELVIR\RITONAVIR
     Indication: COVID-19
     Dosage: FREQUENCY : TWICE A DAY;?
     Route: 048
     Dates: start: 20220605, end: 20220610
  2. LEVOTHYROXINE [Concomitant]
     Active Substance: LEVOTHYROXINE

REACTIONS (12)
  - Asthenia [None]
  - Leukopenia [None]
  - Thrombocytopenia [None]
  - Atrial fibrillation [None]
  - Respiratory failure [None]
  - Blood lactic acid increased [None]
  - Chest X-ray abnormal [None]
  - Lung infiltration [None]
  - Ileus [None]
  - Malnutrition [None]
  - Bacterial infection [None]
  - Coinfection [None]

NARRATIVE: CASE EVENT DATE: 20220617
